FAERS Safety Report 21620795 (Version 1)
Quarter: 2022Q4

REPORT INFORMATION
  Report Type: Spontaneous
  Country: US (occurrence: US)
  Receive Date: 20221121
  Receipt Date: 20221121
  Transmission Date: 20230113
  Serious: No
  Sender: FDA-Public Use
  Company Number: US-LUPIN PHARMACEUTICALS INC.-2022-13534

PATIENT

DRUGS (1)
  1. AZITHROMYCIN ANHYDROUS [Suspect]
     Active Substance: AZITHROMYCIN ANHYDROUS
     Indication: Infection
     Dosage: 1 DOSAGE FORM, QD
     Route: 048
     Dates: start: 20221107, end: 20221108

REACTIONS (1)
  - Faeces discoloured [Recovered/Resolved]
